FAERS Safety Report 24670448 (Version 1)
Quarter: 2024Q4

REPORT INFORMATION
  Report Type: Spontaneous
  Country: US (occurrence: None)
  Receive Date: 20241126
  Receipt Date: 20241126
  Transmission Date: 20250114
  Serious: No
  Sender: Public
  Company Number: None

PATIENT
  Age: 82 Year
  Sex: Female

DRUGS (2)
  1. XDEMVY [Suspect]
     Active Substance: LOTILANER
     Dosage: FREQUENCY : TWICE A DAY;?
     Route: 031
  2. XDEMVY 0.25% DROP 0.25 % SOLN [Concomitant]
     Dates: start: 20241120, end: 20241122

REACTIONS (1)
  - Pruritus [None]

NARRATIVE: CASE EVENT DATE: 20241120
